FAERS Safety Report 7283469-7 (Version None)
Quarter: 2011Q1

REPORT INFORMATION
  Report Type: 
  Country: None (occurrence: None)
  Receive Date: 20110209
  Receipt Date: 20110128
  Transmission Date: 20110831
  Serious: Yes (Other)
  Sender: FDA-Public Use
  Company Number: PHHY2011DE08010

PATIENT
  Sex: Female

DRUGS (3)
  1. CHEMOTHERAPEUTICS [Concomitant]
     Indication: BLADDER NEOPLASM SURGERY
     Dosage: UNK
  2. NITROCELLULOSE LACQUERS [Suspect]
     Dosage: UNK
  3. CO-DIOVAN [Suspect]
     Indication: HYPERTENSION
     Dosage: 1 DF, DAILY
     Dates: start: 20030101

REACTIONS (10)
  - HEPATIC NEOPLASM [None]
  - BLADDER NEOPLASM [None]
  - DRY MOUTH [None]
  - OSTEOARTHRITIS [None]
  - HEPATIC STEATOSIS [None]
  - BLOOD PRESSURE FLUCTUATION [None]
  - CATARACT [None]
  - THROAT IRRITATION [None]
  - VOMITING [None]
  - PRURITUS [None]
